FAERS Safety Report 21973815 (Version 1)
Quarter: 2023Q1

REPORT INFORMATION
  Report Type: Spontaneous
  Country: US (occurrence: US)
  Receive Date: 20230209
  Receipt Date: 20230209
  Transmission Date: 20230417
  Serious: Yes (Death, Hospitalization, Other)
  Sender: FDA-Public Use
  Company Number: US-APOTEX-2023AP002823

PATIENT
  Age: 49 Year
  Sex: Female

DRUGS (3)
  1. ACETAMINOPHEN [Suspect]
     Active Substance: ACETAMINOPHEN
     Indication: Product used for unknown indication
     Dosage: UNK
     Route: 065
  2. BUTABARBITAL [Suspect]
     Active Substance: BUTABARBITAL
     Indication: Product used for unknown indication
     Dosage: UNK
     Route: 065
  3. CAFFEINE [Suspect]
     Active Substance: CAFFEINE
     Indication: Product used for unknown indication
     Dosage: UNK
     Route: 065

REACTIONS (11)
  - Coma [Fatal]
  - Depressed level of consciousness [Fatal]
  - Acute kidney injury [Fatal]
  - Rhabdomyolysis [Fatal]
  - Hepatotoxicity [Fatal]
  - Toxicity to various agents [Fatal]
  - Hypotension [Fatal]
  - Metabolic acidosis [Fatal]
  - Anion gap abnormal [Fatal]
  - Coagulopathy [Fatal]
  - Leukocytosis [Fatal]
